FAERS Safety Report 6991983-4 (Version None)
Quarter: 2010Q3

REPORT INFORMATION
  Report Type: 
  Country: None (occurrence: None)
  Receive Date: 20100917
  Receipt Date: 20100907
  Transmission Date: 20110219
  Serious: Yes (Hospitalization, Other)
  Sender: FDA-Public Use
  Company Number: PHEH2005US12254

PATIENT
  Sex: Female

DRUGS (31)
  1. AREDIA [Suspect]
     Indication: BREAST CANCER
     Dosage: 90 MG, QMO
     Dates: start: 20021201, end: 20040610
  2. ZOMETA [Suspect]
     Indication: BREAST CANCER
     Dosage: 4 MG, QMO
     Dates: start: 20020507, end: 20021114
  3. FEMARA [Concomitant]
     Indication: BREAST CANCER
     Dates: start: 20040319
  4. EFFEXOR [Concomitant]
     Indication: HOT FLUSH
     Dosage: 37.5 MG, QD
  5. SYNTHROID [Concomitant]
  6. CELEBREX [Concomitant]
  7. CYTOMEL [Concomitant]
     Dosage: 2.5 MG, QD
  8. FORTEO [Concomitant]
     Dosage: UNK
     Dates: start: 20060101
  9. ACTIFED [Concomitant]
  10. AMBIEN [Concomitant]
  11. FISH OIL [Concomitant]
  12. ESTRING [Concomitant]
  13. PRILOSEC [Concomitant]
  14. TRIAMCINOLONE [Concomitant]
  15. GAVISCON                                /GFR/ [Concomitant]
  16. GLUCONATE SODIUM [Concomitant]
  17. LYSINE ASPIRIN [Concomitant]
  18. COUMADIN [Concomitant]
  19. LOVENOX [Concomitant]
  20. REGLAN [Concomitant]
  21. TAMOXIFEN CITRATE [Concomitant]
  22. ENOXAPARIN SODIUM [Concomitant]
  23. COMPAZINE [Concomitant]
  24. CIPROFLOXACIN [Concomitant]
  25. CIMETIDINE [Concomitant]
  26. ACETAMINOPHEN [Concomitant]
  27. ONDANSETRON [Concomitant]
  28. PACLITAXEL [Concomitant]
  29. RESTORIL [Concomitant]
     Dosage: UNK
     Dates: start: 20030226
  30. PROVERA [Concomitant]
  31. ESTRADERM [Concomitant]

REACTIONS (56)
  - ADNEXA UTERI MASS [None]
  - AMNESIA [None]
  - ANGIOEDEMA [None]
  - ANXIETY [None]
  - ARTHRITIS [None]
  - BIOPSY TONGUE ABNORMAL [None]
  - BONE DEBRIDEMENT [None]
  - BONE DISORDER [None]
  - BUNDLE BRANCH BLOCK LEFT [None]
  - BUNION OPERATION [None]
  - CATHETER PLACEMENT [None]
  - CEREBRAL ISCHAEMIA [None]
  - DEBRIDEMENT [None]
  - DECREASED INTEREST [None]
  - DEEP VEIN THROMBOSIS [None]
  - DEFORMITY [None]
  - EMOTIONAL DISTRESS [None]
  - ENDODONTIC PROCEDURE [None]
  - FOOT OPERATION [None]
  - GASTROOESOPHAGEAL REFLUX DISEASE [None]
  - GENERAL PHYSICAL HEALTH DETERIORATION [None]
  - GINGIVAL ERYTHEMA [None]
  - GINGIVAL SWELLING [None]
  - GINGIVAL ULCERATION [None]
  - HOT FLUSH [None]
  - HYPERTENSION [None]
  - HYPOPHAGIA [None]
  - JOINT ARTHROPLASTY [None]
  - LEUKOCYTOSIS [None]
  - LIFE EXPECTANCY SHORTENED [None]
  - LYMPHADENECTOMY [None]
  - MICTURITION URGENCY [None]
  - MONONUCLEOSIS SYNDROME [None]
  - NEOPLASM MALIGNANT [None]
  - OEDEMA MOUTH [None]
  - ONYCHOMYCOSIS [None]
  - ORAL PAIN [None]
  - OSTEONECROSIS OF JAW [None]
  - OSTEOPENIA [None]
  - OSTEOTOMY [None]
  - PERIODONTITIS [None]
  - POLYP [None]
  - POSTMENOPAUSAL HAEMORRHAGE [None]
  - SALIVARY GLAND ENLARGEMENT [None]
  - SOFT TISSUE INFECTION [None]
  - SWELLING [None]
  - SWOLLEN TONGUE [None]
  - TOE OPERATION [None]
  - TOOTH ABSCESS [None]
  - TOOTH EXTRACTION [None]
  - UTERINE CERVICAL SQUAMOUS METAPLASIA [None]
  - UTERINE DILATION AND CURETTAGE [None]
  - UTERINE ENLARGEMENT [None]
  - UTERINE LEIOMYOMA [None]
  - UTERINE POLYP [None]
  - VAGINAL HAEMORRHAGE [None]
